FAERS Safety Report 15723487 (Version 1)
Quarter: 2018Q4

REPORT INFORMATION
  Report Type: Spontaneous
  Country: US (occurrence: US)
  Receive Date: 20181214
  Receipt Date: 20181214
  Transmission Date: 20190205
  Serious: No
  Sender: FDA-Public Use
  Company Number: US-SCILEX PHARMACEUTICALS, INC.-2018SCX00005

PATIENT
  Sex: Male

DRUGS (1)
  1. ZTLIDO [Suspect]
     Active Substance: LIDOCAINE

REACTIONS (1)
  - Drug ineffective [Unknown]
